FAERS Safety Report 5358225-7 (Version None)
Quarter: 2007Q2

REPORT INFORMATION
  Report Type: 
  Country: None (occurrence: None)
  Receive Date: 20070530
  Receipt Date: 20070305
  Transmission Date: 20071010
  Serious: Yes (Hospitalization, Other)
  Sender: FDA-Public Use
  Company Number: US200603004590

PATIENT
  Age: 48 Year
  Sex: Female
  Weight: 88.4 kg

DRUGS (2)
  1. ZYPREXA [Suspect]
     Indication: DEPRESSION
     Dates: start: 20050922, end: 20051201
  2. HUMALOG [Concomitant]

REACTIONS (4)
  - CHEST PAIN [None]
  - DIABETES MELLITUS [None]
  - KETONURIA [None]
  - WEIGHT INCREASED [None]
